FAERS Safety Report 11290763 (Version 1)
Quarter: 2015Q3

REPORT INFORMATION
  Report Type: Spontaneous
  Country: US (occurrence: None)
  Receive Date: 20150720
  Receipt Date: 20150720
  Transmission Date: 20151125
  Serious: No
  Sender: FDA-Public Use
  Company Number: None

PATIENT
  Age: 13 Year
  Sex: Male

DRUGS (1)
  1. BSS [Suspect]
     Active Substance: CALCIUM CHLORIDE\MAGNESIUM CHLORIDE\POTASSIUM CHLORIDE\SODIUM ACETATE\SODIUM CHLORIDE\SODIUM CITRATE
     Indication: IRRIGATION THERAPY
     Dosage: 15 ML  1  INTRAOCULAR
     Route: 031
     Dates: start: 20150717

REACTIONS (3)
  - Eye disorder [None]
  - Anterior chamber crystallisation [None]
  - Post procedural complication [None]

NARRATIVE: CASE EVENT DATE: 20150717
